FAERS Safety Report 5039888-2 (Version None)
Quarter: 2006Q2

REPORT INFORMATION
  Report Type: 
  Country: None (occurrence: None)
  Receive Date: 20060601
  Receipt Date: 20060109
  Transmission Date: 20061013
  Serious: No
  Sender: FDA-Public Use
  Company Number: 2006PV006836

PATIENT
  Age: 57 Year
  Sex: Female
  Weight: 117.028 kg

DRUGS (7)
  1. BYETTA [Suspect]
     Indication: DIABETES MELLITUS NON-INSULIN-DEPENDENT
     Dosage: 5 MCG;BID;SC
     Route: 058
     Dates: start: 20060104
  2. GLYBURIDE [Concomitant]
  3. TYROSINE [Concomitant]
  4. HUMALOG [Concomitant]
  5. METFORMIN [Concomitant]
  6. LANTUS [Concomitant]
  7. HUMALOG MIX 75/25 [Concomitant]

REACTIONS (6)
  - ABDOMINAL PAIN UPPER [None]
  - DIARRHOEA [None]
  - DRUG INEFFECTIVE [None]
  - HEADACHE [None]
  - HUNGER [None]
  - NAUSEA [None]
